FAERS Safety Report 9606346 (Version 2)
Quarter: 2013Q4

REPORT INFORMATION
  Report Type: Spontaneous
  Country: US (occurrence: US)
  Receive Date: 20131008
  Receipt Date: 20131008
  Transmission Date: 20140711
  Serious: No
  Sender: FDA-Public Use
  Company Number: US-AMGEN-USASP2013039101

PATIENT
  Age: 79 Year
  Sex: Female

DRUGS (4)
  1. PROLIA [Suspect]
     Indication: OSTEOPOROSIS POSTMENOPAUSAL
     Dosage: UNK
     Dates: start: 201212
  2. ANTIHYPERTENSIVES [Concomitant]
  3. CALCIUM [Concomitant]
  4. VITAMIN D3 [Concomitant]
     Dosage: 5000 MG, UNK

REACTIONS (9)
  - Gait disturbance [Unknown]
  - Pain [Unknown]
  - Feeling abnormal [Unknown]
  - Malaise [Unknown]
  - Eating disorder [Unknown]
  - Myalgia [Unknown]
  - Arthralgia [Unknown]
  - Drug hypersensitivity [Unknown]
  - Pain in extremity [Unknown]
